FAERS Safety Report 11883456 (Version 1)
Quarter: 2015Q4

REPORT INFORMATION
  Report Type: Spontaneous
  Country: SE (occurrence: SE)
  Receive Date: 20151231
  Receipt Date: 20151231
  Transmission Date: 20160305
  Serious: Yes (Other)
  Sender: FDA-Public Use
  Company Number: SE-SA-2015SA218031

PATIENT
  Sex: Male

DRUGS (7)
  1. ISOPHANE INSULIN [Concomitant]
     Active Substance: INSULIN NOS
  2. FRAGMIN [Concomitant]
     Active Substance: DALTEPARIN SODIUM
  3. MINDIAB [Concomitant]
     Active Substance: GLIPIZIDE
  4. TROMBYL [Concomitant]
     Active Substance: ASPIRIN
  5. PLAVIX [Suspect]
     Active Substance: CLOPIDOGREL BISULFATE
     Indication: ANTICOAGULANT THERAPY
     Route: 065
     Dates: start: 20121213, end: 20121214
  6. TAVEGYL [Concomitant]
     Active Substance: CLEMASTINE FUMARATE
     Dates: start: 20121204, end: 20121217
  7. PLAVIX [Suspect]
     Active Substance: CLOPIDOGREL BISULFATE
     Indication: ANTICOAGULANT THERAPY
     Route: 048
     Dates: start: 20121120, end: 20121207

REACTIONS (2)
  - Anaemia [Recovered/Resolved]
  - Rash pruritic [Recovered/Resolved]

NARRATIVE: CASE EVENT DATE: 20121204
